FAERS Safety Report 7304375-5 (Version None)
Quarter: 2011Q1

REPORT INFORMATION
  Report Type: 
  Country: None (occurrence: None)
  Receive Date: 20110221
  Receipt Date: 20110210
  Transmission Date: 20110831
  Serious: Yes (Other)
  Sender: FDA-Public Use
  Company Number: GB-ASTRAZENECA-2010SE42222

PATIENT
  Age: 49 Year
  Sex: Female

DRUGS (8)
  1. ZOLADEX [Suspect]
     Indication: ENDOMETRIOSIS
     Route: 058
     Dates: start: 20041129, end: 20050321
  2. ACIDEX [Concomitant]
     Route: 048
     Dates: start: 20070101
  3. TIBOLONE [Concomitant]
     Indication: ENDOMETRIOSIS
     Route: 048
     Dates: start: 20100818
  4. TRAMADOL HCL [Concomitant]
     Route: 048
     Dates: start: 20050101
  5. LANSOPRAZOLE [Concomitant]
     Indication: GASTROINTESTINAL DISORDER
     Dates: start: 20060101
  6. FLUOXETINE [Concomitant]
     Route: 048
     Dates: start: 20050101
  7. ZOLADEX [Suspect]
     Route: 058
     Dates: start: 20100825
  8. TROSPIUM CHLORIDE [Concomitant]
     Indication: HYPERTONIC BLADDER
     Dates: start: 20070101

REACTIONS (3)
  - BLINDNESS TRANSIENT [None]
  - HEADACHE [None]
  - DIZZINESS [None]
